FAERS Safety Report 22012858 (Version 1)
Quarter: 2023Q1

REPORT INFORMATION
  Report Type: Spontaneous
  Country: FR (occurrence: FR)
  Receive Date: 20230220
  Receipt Date: 20230220
  Transmission Date: 20230417
  Serious: Yes (Life-Threatening)
  Sender: FDA-Public Use
  Company Number: None

PATIENT
  Age: 17 Year
  Sex: Female
  Weight: 78 kg

DRUGS (6)
  1. SUFENTANIL [Suspect]
     Active Substance: SUFENTANIL
     Indication: Mammoplasty
     Dosage: 60 MICROGRAM
     Route: 042
     Dates: start: 20221215, end: 20221215
  2. DEXAMETHASONE [Suspect]
     Active Substance: DEXAMETHASONE
     Indication: Mammoplasty
     Dosage: 8 MILLIGRAM
     Route: 042
     Dates: start: 20221215, end: 20221215
  3. CEFAZOLIN SODIUM [Suspect]
     Active Substance: CEFAZOLIN SODIUM
     Indication: Antibiotic therapy
     Dosage: 3 GRAM,POWDER FOR SOLUTION FOR INJECTION (IM-IV)
     Route: 042
     Dates: start: 20221215, end: 20221215
  4. KETAMINE [Suspect]
     Active Substance: KETAMINE
     Indication: Mammoplasty
     Dosage: 30 MILLIGRAM
     Route: 042
     Dates: start: 20221215, end: 20221215
  5. PROPOFOL LIPURO [Suspect]
     Active Substance: PROPOFOL
     Indication: Mammoplasty
     Dosage: 1810 MILLIGRAM
     Route: 042
     Dates: start: 20221215, end: 20221215
  6. CHLORHEXIDINE ACETATE [Suspect]
     Active Substance: CHLORHEXIDINE ACETATE
     Indication: Mammoplasty
     Dosage: UNK,NP
     Route: 003
     Dates: start: 20221215, end: 20221215

REACTIONS (2)
  - Anaphylactic shock [Recovered/Resolved]
  - Anaphylactic reaction [Recovered/Resolved]

NARRATIVE: CASE EVENT DATE: 20221215
